FAERS Safety Report 5509844-6 (Version None)
Quarter: 2007Q4

REPORT INFORMATION
  Report Type: 
  Country: None (occurrence: None)
  Receive Date: 20071030
  Receipt Date: 20070328
  Transmission Date: 20080405
  Serious: Yes (Hospitalization)
  Sender: FDA-Public Use
  Company Number: HQWYE004428MAR07

PATIENT
  Age: 31 Year
  Sex: Female
  Weight: 97.98 kg

DRUGS (1)
  1. PREMARIN [Suspect]

REACTIONS (2)
  - NAUSEA [None]
  - PULMONARY EMBOLISM [None]
